FAERS Safety Report 5912597-0 (Version None)
Quarter: 2008Q3

REPORT INFORMATION
  Report Type: 
  Country: None (occurrence: None)
  Receive Date: 20080909
  Receipt Date: 20080506
  Transmission Date: 20090109
  Serious: Yes (Disabling)
  Sender: FDA-Public Use
  Company Number: 163-20785-08031731

PATIENT
  Age: 72 Year
  Sex: Female

DRUGS (8)
  1. THALOMID [Suspect]
     Indication: MULTIPLE MYELOMA
     Dosage: 50 MG, 1 IN 1 D, ORAL : 200 MG, 1 IN 1 D, ORAL : 150MG-100MG, DAILY, ORAL
     Route: 048
     Dates: start: 20060329, end: 20070601
  2. THALOMID [Suspect]
     Indication: MULTIPLE MYELOMA
     Dosage: 50 MG, 1 IN 1 D, ORAL : 200 MG, 1 IN 1 D, ORAL : 150MG-100MG, DAILY, ORAL
     Route: 048
     Dates: start: 20070615, end: 20071001
  3. THALOMID [Suspect]
     Indication: MULTIPLE MYELOMA
     Dosage: 50 MG, 1 IN 1 D, ORAL : 200 MG, 1 IN 1 D, ORAL : 150MG-100MG, DAILY, ORAL
     Route: 048
     Dates: start: 20071106, end: 20080310
  4. BIOTIN [Concomitant]
  5. COD LIVER OIL FORTIFIED TAB [Concomitant]
  6. ZOMETA [Concomitant]
  7. PROPRANOLOL [Concomitant]
  8. EFFEXOR [Concomitant]

REACTIONS (4)
  - HYPOAESTHESIA [None]
  - NEUROPATHY PERIPHERAL [None]
  - PAIN [None]
  - PARAESTHESIA [None]
